FAERS Safety Report 13586775 (Version 1)
Quarter: 2017Q2

REPORT INFORMATION
  Report Type: Spontaneous
  Country: US (occurrence: US)
  Receive Date: 20170526
  Receipt Date: 20170526
  Transmission Date: 20170830
  Serious: No
  Sender: FDA-Public Use
  Company Number: US-ROCHE-1836080

PATIENT
  Age: 68 Year
  Sex: Female

DRUGS (4)
  1. VALGANCICLOVIR. [Suspect]
     Active Substance: VALGANCICLOVIR
     Route: 065
  2. FOSCARNET [Concomitant]
     Active Substance: FOSCARNET
     Route: 042
  3. VALGANCICLOVIR. [Suspect]
     Active Substance: VALGANCICLOVIR
     Indication: PROPHYLAXIS
     Route: 048
  4. FOSCARNET [Concomitant]
     Active Substance: FOSCARNET
     Route: 042

REACTIONS (1)
  - Drug resistance [Unknown]
